FAERS Safety Report 6747419-1 (Version None)
Quarter: 2010Q2

REPORT INFORMATION
  Report Type: 
  Country: None (occurrence: None)
  Receive Date: 20100528
  Receipt Date: 20100520
  Transmission Date: 20101027
  Serious: Yes (Hospitalization)
  Sender: FDA-Public Use
  Company Number: US-JNJFOC-20100508731

PATIENT
  Age: 14 Year
  Sex: Female
  Weight: 37.9 kg

DRUGS (4)
  1. REMICADE [Suspect]
     Indication: INFLAMMATORY BOWEL DISEASE
     Route: 042
     Dates: start: 20081231
  2. REMICADE [Suspect]
     Route: 042
     Dates: start: 20081231
  3. 5-ASA [Concomitant]
  4. HUMIRA [Concomitant]

REACTIONS (2)
  - INFLAMMATORY BOWEL DISEASE [None]
  - PANCREATITIS [None]
